FAERS Safety Report 12592641 (Version 2)
Quarter: 2016Q4

REPORT INFORMATION
  Report Type: Report from Study
  Country: US (occurrence: US)
  Receive Date: 20160726
  Receipt Date: 20161010
  Transmission Date: 20170207
  Serious: Yes (Hospitalization, Other)
  Sender: FDA-Public Use
  Company Number: PHHO2016US010062

PATIENT
  Age: 86 Year
  Sex: Male
  Weight: 81.63 kg

DRUGS (3)
  1. PRADAXA [Concomitant]
     Active Substance: DABIGATRAN ETEXILATE MESYLATE
     Indication: CARDIAC FAILURE
     Dosage: 150 MG, QD
     Route: 065
     Dates: start: 20141221
  2. DIOVAN [Suspect]
     Active Substance: VALSARTAN
     Indication: CARDIAC FAILURE
     Dosage: CODE NOT BROKEN
     Route: 048
     Dates: start: 20160614
  3. FUROSEMIDE. [Concomitant]
     Active Substance: FUROSEMIDE
     Indication: CARDIAC FAILURE
     Dosage: 20 MG, TID
     Route: 065
     Dates: start: 20160527

REACTIONS (2)
  - Pneumonia [Unknown]
  - Laryngospasm [Not Recovered/Not Resolved]

NARRATIVE: CASE EVENT DATE: 20160617
